FAERS Safety Report 16215598 (Version 2)
Quarter: 2019Q2

REPORT INFORMATION
  Report Type: Spontaneous
  Country: GB (occurrence: GB)
  Receive Date: 20190419
  Receipt Date: 20190430
  Transmission Date: 20190711
  Serious: Yes (Other)
  Sender: FDA-Public Use
  Company Number: GB-TEVA-2019-GB-1038694

PATIENT
  Sex: Male

DRUGS (1)
  1. COPAXONE [Suspect]
     Active Substance: GLATIRAMER ACETATE
     Indication: MULTIPLE SCLEROSIS
     Dosage: 20 MILLIGRAM/MILLILITERS DAILY;
     Route: 058

REACTIONS (16)
  - Lower respiratory tract infection [Unknown]
  - Eosinophil count increased [Unknown]
  - Quality of life decreased [Unknown]
  - Infection [Unknown]
  - Gait inability [Unknown]
  - Asthma [Unknown]
  - Eosinophil count abnormal [Unknown]
  - Bronchitis [Unknown]
  - Choking [Unknown]
  - Productive cough [Unknown]
  - Head discomfort [Unknown]
  - Physical disability [Unknown]
  - Impaired work ability [Unknown]
  - Dyspnoea [Unknown]
  - Ill-defined disorder [Unknown]
  - Traumatic lung injury [Unknown]

NARRATIVE: CASE EVENT DATE: 2008
